FAERS Safety Report 6309293-7 (Version None)
Quarter: 2009Q3

REPORT INFORMATION
  Report Type: 
  Country: None (occurrence: None)
  Receive Date: 20090814
  Receipt Date: 20090803
  Transmission Date: 20100115
  Serious: Yes (Other)
  Sender: FDA-Public Use
  Company Number: MT-PFIZER INC-2009249166

PATIENT
  Age: 80 Year

DRUGS (5)
  1. LYRICA [Suspect]
     Indication: FACIAL NEURALGIA
     Dosage: 150 MG, 2X/DAY
     Route: 048
     Dates: start: 20090601
  2. GABAPENTIN [Suspect]
     Dosage: 300 MG, 3X/DAY
  3. COVERSYL [Concomitant]
     Dosage: 2 MG, 1X/DAY
  4. VASTAREL [Concomitant]
     Dosage: UNK
  5. PAROXETINE [Concomitant]
     Dosage: 20 MG, 1X/DAY

REACTIONS (1)
  - DEAFNESS [None]
